FAERS Safety Report 20170657 (Version 1)
Quarter: 2021Q4

REPORT INFORMATION
  Report Type: Other
  Country: None (occurrence: US)
  Receive Date: 20211210
  Receipt Date: 20211210
  Transmission Date: 20220303
  Serious: Yes (Hospitalization)
  Sender: FDA-Public Use
  Company Number: US-B.Braun Medical Inc.-2122884

PATIENT
  Age: 53 Year
  Sex: Male

DRUGS (1)
  1. ACETAMINOPHEN [Suspect]
     Active Substance: ACETAMINOPHEN

REACTIONS (4)
  - Necrotising oesophagitis [Recovering/Resolving]
  - Intentional overdose [Recovering/Resolving]
  - Haemodynamic instability [Recovering/Resolving]
  - Shock [Recovering/Resolving]
